FAERS Safety Report 5851265-0 (Version None)
Quarter: 2008Q3

REPORT INFORMATION
  Report Type: 
  Country: None (occurrence: None)
  Receive Date: 20080820
  Receipt Date: 20080812
  Transmission Date: 20090109
  Serious: Yes (Hospitalization)
  Sender: FDA-Public Use
  Company Number: GB-BAYER-200812183BNE

PATIENT
  Sex: Male

DRUGS (1)
  1. MIRENA [Suspect]
     Indication: DRUG USE FOR UNKNOWN INDICATION
     Route: 015
     Dates: start: 20080731, end: 20080802

REACTIONS (4)
  - ABDOMINAL PAIN [None]
  - BODY TEMPERATURE INCREASED [None]
  - PERITONITIS [None]
  - SEPTIC SHOCK [None]
